FAERS Safety Report 11463964 (Version 2)
Quarter: 2015Q4

REPORT INFORMATION
  Report Type: Spontaneous
  Country: US (occurrence: US)
  Receive Date: 20150831
  Receipt Date: 20151104
  Transmission Date: 20160304
  Serious: No
  Sender: FDA-Public Use
  Company Number: US-ELI_LILLY_AND_COMPANY-US201105007891

PATIENT
  Age: 55 Year
  Sex: Female

DRUGS (2)
  1. CYMBALTA [Suspect]
     Active Substance: DULOXETINE HYDROCHLORIDE
     Indication: RHEUMATOID ARTHRITIS
     Dosage: UNK, OTHER
     Dates: start: 201105
  2. FORTEO [Suspect]
     Active Substance: TERIPARATIDE
     Indication: OSTEOPOROSIS
     Dosage: UNK, OTHER
     Dates: start: 201105

REACTIONS (12)
  - Blood pressure increased [Unknown]
  - Paraesthesia [Unknown]
  - Depression [Unknown]
  - Injection site irritation [Unknown]
  - Peripheral swelling [Unknown]
  - Arthralgia [Unknown]
  - Blood pressure decreased [Unknown]
  - Fluid retention [Unknown]
  - Off label use [Unknown]
  - Malaise [Unknown]
  - Migraine [Unknown]
  - Feeling cold [Unknown]

NARRATIVE: CASE EVENT DATE: 201105
